FAERS Safety Report 17001888 (Version 1)
Quarter: 2019Q4

REPORT INFORMATION
  Report Type: Spontaneous
  Country: CA (occurrence: CA)
  Receive Date: 20191106
  Receipt Date: 20191106
  Transmission Date: 20200122
  Serious: Yes (Other)
  Sender: FDA-Public Use
  Company Number: CA-TEVA-2019-CA-1131159

PATIENT
  Age: 55 Year
  Sex: Female

DRUGS (5)
  1. COVERSYL [Concomitant]
     Active Substance: PERINDOPRIL
  2. METFORMIN [Concomitant]
     Active Substance: METFORMIN HYDROCHLORIDE
  3. CBD OIL [Concomitant]
     Active Substance: CANNABIDIOL\HERBALS
  4. LORAZEPAM. [Concomitant]
     Active Substance: LORAZEPAM
  5. DOXYCYCLINE TABLETS [Suspect]
     Active Substance: DOXYCYCLINE
     Indication: BRONCHITIS
     Dosage: 200 MILLIGRAM DAILY;
     Route: 048

REACTIONS (1)
  - Suicidal ideation [Recovered/Resolved]
